FAERS Safety Report 8018664-2 (Version None)
Quarter: 2012Q1

REPORT INFORMATION
  Report Type: 
  Country: None (occurrence: None)
  Receive Date: 20120103
  Receipt Date: 20120103
  Transmission Date: 20120608
  Serious: Yes (Hospitalization)
  Sender: FDA-Public Use
  Company Number: None

PATIENT
  Age: 63 Year
  Sex: Female

DRUGS (1)
  1. BYETTA [Suspect]
     Indication: TYPE 2 DIABETES MELLITUS
     Dosage: 10 MCG
     Route: 058
     Dates: start: 20111004, end: 20111025

REACTIONS (5)
  - TACHYCARDIA [None]
  - DEHYDRATION [None]
  - NAUSEA [None]
  - VOMITING [None]
  - HYPERTHYROIDISM [None]
